FAERS Safety Report 10557921 (Version 1)
Quarter: 2014Q4

REPORT INFORMATION
  Report Type: Spontaneous
  Country: US (occurrence: US)
  Receive Date: 20141031
  Receipt Date: 20141031
  Transmission Date: 20150529
  Serious: Yes (Other)
  Sender: FDA-Public Use
  Company Number: US-ACTAVIS-2014-23057

PATIENT

DRUGS (2)
  1. BUPRENORPHINE HYDROCHLORIDE AND NALOXONE HYDROCHLORIDE DIHYDRATE [Suspect]
     Active Substance: BUPRENORPHINE\NALOXONE
     Dosage: UNK
     Route: 065
  2. BUPRENORPHINE HYDROCHLORIDE AND NALOXONE HYDROCHLORIDE DIHYDRATE [Suspect]
     Active Substance: BUPRENORPHINE\NALOXONE
     Indication: PRODUCT USED FOR UNKNOWN INDICATION
     Dosage: UNK, UNKNOWN
     Route: 065

REACTIONS (7)
  - Intentional product misuse [Unknown]
  - Pain [Unknown]
  - Seizure [Unknown]
  - Suicidal ideation [Unknown]
  - Drug abuse [Unknown]
  - Euphoric mood [Unknown]
  - Drug withdrawal syndrome [Unknown]
